FAERS Safety Report 5895363-4 (Version None)
Quarter: 2008Q3

REPORT INFORMATION
  Report Type: 
  Country: None (occurrence: None)
  Receive Date: 20080923
  Receipt Date: 20080923
  Transmission Date: 20090109
  Serious: No
  Sender: FDA-Public Use
  Company Number: None

PATIENT
  Sex: Female

DRUGS (1)
  1. DEPAKOTE [Suspect]
     Dosage: 1000MG 7A AND 10P OTHER  : 250MG 4PM OTHER
     Route: 050
     Dates: start: 20050101, end: 20080922

REACTIONS (2)
  - CONTUSION [None]
  - THROMBOCYTOPENIA [None]
